FAERS Safety Report 15893014 (Version 1)
Quarter: 2019Q1

REPORT INFORMATION
  Report Type: Report from Study
  Country: US (occurrence: US)
  Receive Date: 20190130
  Receipt Date: 20190130
  Transmission Date: 20190417
  Serious: No
  Sender: FDA-Public Use
  Company Number: US-EXELIXIS-CABO-18015370

PATIENT
  Sex: Male

DRUGS (7)
  1. LEVOTHYROXINE. [Concomitant]
     Active Substance: LEVOTHYROXINE
  2. OXYCODONE [Concomitant]
     Active Substance: OXYCODONE
  3. MIRALAX [Concomitant]
     Active Substance: POLYETHYLENE GLYCOL 3350
  4. ROBAXIN [Concomitant]
     Active Substance: METHOCARBAMOL
  5. CABOMETYX [Suspect]
     Active Substance: CABOZANTINIB S-MALATE
     Indication: RENAL CANCER
     Dosage: 40 MG, QD (FOR 15 DAYS)
     Route: 048
     Dates: start: 20180724
  6. MIRTAZAPINE. [Concomitant]
     Active Substance: MIRTAZAPINE
  7. ZOMETA [Concomitant]
     Active Substance: ZOLEDRONIC ACID

REACTIONS (4)
  - Alopecia [Unknown]
  - Nausea [Unknown]
  - Hair colour changes [Unknown]
  - Abdominal discomfort [Unknown]

NARRATIVE: CASE EVENT DATE: 2018
